FAERS Safety Report 11894751 (Version 1)
Quarter: 2016Q1

REPORT INFORMATION
  Report Type: Spontaneous
  Country: US (occurrence: US)
  Receive Date: 20160107
  Receipt Date: 20160107
  Transmission Date: 20160526
  Serious: No
  Sender: FDA-Public Use
  Company Number: US-DRREDDYS-USA/USA/15/0049804

PATIENT
  Age: 64 Year
  Sex: Female
  Weight: 77.1 kg

DRUGS (4)
  1. HABITROL [Suspect]
     Active Substance: NICOTINE
     Route: 061
  2. CLONIDINE. [Concomitant]
     Active Substance: CLONIDINE
     Indication: PRODUCT USED FOR UNKNOWN INDICATION
     Route: 065
  3. HABITROL [Suspect]
     Active Substance: NICOTINE
     Indication: SMOKING CESSATION THERAPY
     Route: 061
  4. HABITROL [Suspect]
     Active Substance: NICOTINE
     Route: 061

REACTIONS (2)
  - Product quality issue [Unknown]
  - Nicotine dependence [Not Recovered/Not Resolved]

NARRATIVE: CASE EVENT DATE: 201507
